FAERS Safety Report 9980114 (Version 1)
Quarter: 2014Q1

REPORT INFORMATION
  Report Type: Report from Study
  Country: US (occurrence: US)
  Receive Date: 20140307
  Receipt Date: 20140307
  Transmission Date: 20141002
  Serious: No
  Sender: FDA-Public Use
  Company Number: US-ABBVIE-13P-163-1175356-00

PATIENT
  Age: 52 Year
  Sex: Male

DRUGS (3)
  1. HUMIRA [Suspect]
     Dates: start: 20131113, end: 20131113
  2. HUMIRA [Suspect]
     Dates: start: 20131124, end: 20131124
  3. HUMIRA [Suspect]

REACTIONS (1)
  - Injection site pain [Recovered/Resolved]
